FAERS Safety Report 25361782 (Version 1)
Quarter: 2025Q2

REPORT INFORMATION
  Report Type: Spontaneous
  Country: SA (occurrence: SA)
  Receive Date: 20250527
  Receipt Date: 20250527
  Transmission Date: 20250717
  Serious: Yes (Death, Hospitalization, Other)
  Sender: AMGEN
  Company Number: SA-AMGEN-SAUSP2025100267

PATIENT

DRUGS (1)
  1. EVOLOCUMAB [Suspect]
     Active Substance: EVOLOCUMAB
     Indication: Type IIa hyperlipidaemia
     Route: 065

REACTIONS (7)
  - Death [Fatal]
  - Sudden death [Fatal]
  - Myocardial infarction [Fatal]
  - Cardiovascular disorder [Unknown]
  - Angina pectoris [Unknown]
  - Aortic stenosis [Unknown]
  - Off label use [Unknown]
